FAERS Safety Report 5669820-X (Version None)
Quarter: 2008Q1

REPORT INFORMATION
  Report Type: 
  Country: None (occurrence: None)
  Receive Date: 20080317
  Receipt Date: 20080307
  Transmission Date: 20080703
  Serious: Yes (Other)
  Sender: FDA-Public Use
  Company Number: CA-ALLERGAN-0802857US

PATIENT
  Sex: Female

DRUGS (2)
  1. BOTOX COSMETIC [Suspect]
     Indication: SKIN WRINKLING
     Dosage: 31 UNITS, SINGLE
     Route: 030
     Dates: start: 20070523, end: 20070523
  2. BOTOX COSMETIC [Suspect]
     Dosage: 61 UNITS, SINGLE
     Route: 030
     Dates: start: 20070911, end: 20070911

REACTIONS (2)
  - ANGIOEDEMA [None]
  - WRONG TECHNIQUE IN DRUG USAGE PROCESS [None]
